FAERS Safety Report 5166496-5 (Version None)
Quarter: 2006Q4

REPORT INFORMATION
  Report Type: 
  Country: None (occurrence: None)
  Receive Date: 20061129
  Receipt Date: 20061115
  Transmission Date: 20070319
  Serious: Yes (Death, Hospitalization)
  Sender: FDA-Public Use
  Company Number: A-CH2006-13255

PATIENT
  Age: 14 Year
  Sex: Female

DRUGS (5)
  1. TRACLEER [Suspect]
     Indication: PULMONARY HYPERTENSION
     Dosage: 125 MG, BID, ORAL; 62.5 MG, BID, ORAL
     Route: 048
     Dates: start: 20060301, end: 20060430
  2. TRACLEER [Suspect]
     Indication: PULMONARY HYPERTENSION
     Dosage: 125 MG, BID, ORAL; 62.5 MG, BID, ORAL
     Route: 048
     Dates: start: 20060501, end: 20061013
  3. COUMADIN [Concomitant]
  4. ILOPROST (ILOPROST) [Concomitant]
  5. DIGOXIN [Concomitant]

REACTIONS (6)
  - ABDOMINAL PAIN [None]
  - ASCITES [None]
  - CARDIAC ARREST [None]
  - HYPOTENSION [None]
  - SYNCOPE [None]
  - TACHYCARDIA [None]
